FAERS Safety Report 23396425 (Version 1)
Quarter: 2024Q1

REPORT INFORMATION
  Report Type: Spontaneous
  Country: IT (occurrence: IT)
  Receive Date: 20240112
  Receipt Date: 20240112
  Transmission Date: 20240410
  Serious: Yes (Other)
  Sender: FDA-Public Use
  Company Number: None

PATIENT
  Age: 34 Year
  Sex: Male

DRUGS (4)
  1. OXALIPLATIN [Suspect]
     Active Substance: OXALIPLATIN
     Indication: Colon cancer stage IV
     Dosage: UNK, Q3W
     Route: 042
     Dates: start: 20220111, end: 20220817
  2. OXALIPLATIN [Suspect]
     Active Substance: OXALIPLATIN
     Dosage: UNK, Q3W
     Route: 042
     Dates: start: 20231116, end: 20231207
  3. CAPECITABINE [Concomitant]
     Active Substance: CAPECITABINE
     Indication: Colon cancer stage IV
     Dosage: 300 MG, Q3W
     Route: 048
     Dates: start: 20231116
  4. NADROPARIN CALCIUM [Concomitant]
     Active Substance: NADROPARIN CALCIUM
     Dosage: 0.6 ML, QD
     Route: 058

REACTIONS (1)
  - Sensitisation [Recovered/Resolved]

NARRATIVE: CASE EVENT DATE: 20231207
